FAERS Safety Report 10202761 (Version 2)
Quarter: 2014Q2

REPORT INFORMATION
  Report Type: Spontaneous
  Country: JP (occurrence: JP)
  Receive Date: 20140528
  Receipt Date: 20140626
  Transmission Date: 20141212
  Serious: Yes (Other)
  Sender: FDA-Public Use
  Company Number: JP-OTSUKA-US-2014-10919

PATIENT
  Age: 7 Month
  Sex: Male

DRUGS (11)
  1. BUSULFEX [Suspect]
     Indication: STEM CELL TRANSPLANT
     Dosage: 0.98 MG/KG, UNK
     Route: 042
  2. BUSULFEX [Suspect]
     Dosage: 0.86 MG/KG, UNK
     Route: 042
  3. CYCLOPHOSPHAMIDE [Suspect]
     Indication: STEM CELL TRANSPLANT
     Dosage: 50 MG/KG, QD
     Route: 042
  4. ETOPOSIDE [Suspect]
     Indication: STEM CELL TRANSPLANT
     Dosage: 50 MG/KG, QD
     Route: 042
  5. METHOTREXATE [Concomitant]
     Indication: PROPHYLAXIS AGAINST GRAFT VERSUS HOST DISEASE
  6. TACROLIMUS [Concomitant]
     Indication: PROPHYLAXIS AGAINST GRAFT VERSUS HOST DISEASE
  7. DANAPAROID SODIUM [Concomitant]
     Indication: PROPHYLAXIS
  8. URSODEOXYCHOLIC ACID [Concomitant]
     Indication: PROPHYLAXIS
  9. PROSTAGLANDIN E1 [Concomitant]
  10. RED BLOOD CELLS [Concomitant]
  11. PLATELET CONCENTRATE [Concomitant]

REACTIONS (1)
  - Pulmonary hypertension [Recovered/Resolved]
